FAERS Safety Report 5057911-6 (Version None)
Quarter: 2006Q3

REPORT INFORMATION
  Report Type: 
  Country: None (occurrence: None)
  Receive Date: 20060721
  Receipt Date: 20060331
  Transmission Date: 20061208
  Serious: No
  Sender: FDA-Public Use
  Company Number: US-GLAXOSMITHKLINE-A0599904A

PATIENT
  Age: 79 Year
  Sex: Male

DRUGS (6)
  1. AVANDIA [Suspect]
     Dosage: 8MG PER DAY
     Route: 048
  2. AVALIDE [Concomitant]
  3. SYNTHROID [Concomitant]
  4. LOVASTATIN [Concomitant]
  5. IRON SUPPLEMENT [Concomitant]
  6. PRILOSEC [Concomitant]

REACTIONS (2)
  - BLOOD GLUCOSE INCREASED [None]
  - OVERDOSE [None]
